FAERS Safety Report 12707898 (Version 1)
Quarter: 2016Q3

REPORT INFORMATION
  Report Type: Report from Study
  Country: DE (occurrence: DE)
  Receive Date: 20160901
  Receipt Date: 20160901
  Transmission Date: 20161109
  Serious: Yes (Death, Other)
  Sender: FDA-Public Use
  Company Number: DE-BAYER-200410030BVD

PATIENT
  Age: 65 Year
  Sex: Female
  Weight: 115 kg

DRUGS (47)
  1. CIPROBAY [Suspect]
     Active Substance: CIPROFLOXACIN
     Indication: CHRONIC OBSTRUCTIVE PULMONARY DISEASE
     Dosage: 2 DF, QD
     Route: 048
     Dates: start: 20010720, end: 20010724
  2. LEFAX [Suspect]
     Active Substance: DIMETHICONE
     Indication: FLATULENCE
     Dosage: UNK, QD
     Route: 048
     Dates: start: 20010721, end: 20010721
  3. PANTOZOL [Suspect]
     Active Substance: PANTOPRAZOLE SODIUM
     Indication: PROPHYLAXIS
     Dosage: 40 MG, QD
     Route: 048
     Dates: start: 20010720
  4. SEREVENT DISKUS [Concomitant]
     Active Substance: SALMETEROL XINAFOATE
     Route: 055
     Dates: end: 20010720
  5. DECORTIN [Concomitant]
     Active Substance: PREDNISONE
     Route: 048
     Dates: end: 20010720
  6. PREDNISONE. [Concomitant]
     Active Substance: PREDNISONE
     Dosage: 1 DF, QD QAM
     Route: 048
     Dates: end: 20010720
  7. PROMETHAZINE [Concomitant]
     Active Substance: PROMETHAZINE\PROMETHAZINE HYDROCHLORIDE
     Indication: SLEEP APNOEA SYNDROME
     Route: 048
     Dates: start: 20010731, end: 20010731
  8. SEREVENT DISKUS [Concomitant]
     Active Substance: SALMETEROL XINAFOATE
     Dosage: 12-0-2 HEAVES, BID
     Route: 055
     Dates: end: 20010720
  9. FORADIL [Suspect]
     Active Substance: FORMOTEROL FUMARATE
     Indication: CHRONIC OBSTRUCTIVE PULMONARY DISEASE
     Dosage: MULTIPLE INHALATIONS, QD
     Route: 055
     Dates: start: 20010720
  10. NORVASK [Suspect]
     Active Substance: AMLODIPINE BESYLATE
     Indication: HYPERTENSION
     Dosage: 10 MG, QD
     Route: 048
     Dates: start: 20010723
  11. BAMBEC [Concomitant]
     Active Substance: BAMBUTEROL HYDROCHLORIDE
     Dosage: 1 DF, QD
     Route: 048
     Dates: end: 20010720
  12. VIGANTOLETTEN [COLECALCIFEROL] [Concomitant]
     Active Substance: CHOLECALCIFEROL
     Indication: VITAMIN D DEFICIENCY
     Route: 048
  13. LASIX [Suspect]
     Active Substance: FUROSEMIDE
     Indication: RENAL FAILURE
     Dosage: 1 DF, QD
     Route: 042
     Dates: end: 20010725
  14. ZYLORIC [Suspect]
     Active Substance: ALLOPURINOL
     Indication: HYPERURICAEMIA
     Dosage: 300 MG, QD
     Route: 048
     Dates: start: 20010721
  15. NITRO [Suspect]
     Active Substance: NITROGLYCERIN
     Indication: ASTHMA
     Dosage: 50 MG, QD
     Route: 042
     Dates: start: 20010723, end: 20010724
  16. AQUAPHOR (XIPAMIDE) [Suspect]
     Active Substance: XIPAMIDE
     Indication: CHRONIC OBSTRUCTIVE PULMONARY DISEASE
     Dosage: 1 DF, QD
     Route: 048
     Dates: start: 20010725
  17. JUNIK [Concomitant]
     Active Substance: BECLOMETHASONE DIPROPIONATE
     Route: 055
     Dates: end: 20010720
  18. AMITRIPTYLINE [Suspect]
     Active Substance: AMITRIPTYLINE
     Indication: DEPRESSION
     Dosage: AS USED 10MG-10MG-25MG
     Route: 048
  19. ACC [ACETYLCYSTEINE] [Suspect]
     Active Substance: ACETYLCYSTEINE
     Indication: SECRETION DISCHARGE
     Dosage: 1 DF, BID
     Dates: start: 20010720, end: 20010720
  20. BRONCHORETARD [Suspect]
     Active Substance: THEOPHYLLINE ANHYDROUS
     Indication: CHRONIC OBSTRUCTIVE PULMONARY DISEASE
     Route: 048
     Dates: start: 20010720
  21. SOLU DECORTIN H [Suspect]
     Active Substance: PREDNISOLONE SODIUM SUCCINATE
     Indication: CHRONIC OBSTRUCTIVE PULMONARY DISEASE
     Dosage: AS USED DOSE: 100-0-50 MG
     Route: 042
     Dates: start: 20010720
  22. UNAT [Suspect]
     Active Substance: TORSEMIDE
     Indication: CARDIAC FAILURE CONGESTIVE
     Dosage: 10 MG, QD
     Route: 048
     Dates: start: 20010723
  23. BIFITERAL [Suspect]
     Active Substance: LACTULOSE
     Indication: CONSTIPATION
     Dosage: 200 MG, QD
     Route: 048
     Dates: start: 20010724
  24. SORTIS [Suspect]
     Active Substance: ATORVASTATIN
     Indication: CARDIAC FAILURE
     Dosage: 10 MG, QD
     Route: 048
     Dates: start: 20010725
  25. UNIPHYLLIN [Concomitant]
     Active Substance: THEOPHYLLINE ANHYDROUS
     Dosage: AS USED DOSE: 200-0-4000 MG, QD
     Route: 048
     Dates: end: 20010720
  26. VIGANTOLETTEN [Concomitant]
     Active Substance: CHOLECALCIFEROL
     Indication: VITAMIN D DEFICIENCY
     Route: 048
  27. ALT-INSULIN [Suspect]
     Active Substance: FRUCTOSE\INSULIN BEEF
     Indication: DIABETES MELLITUS
     Dosage: UNK UNK, PRN
     Route: 042
     Dates: start: 20010720
  28. ATROVENT [Suspect]
     Active Substance: IPRATROPIUM BROMIDE
     Indication: CHRONIC OBSTRUCTIVE PULMONARY DISEASE
     Dosage: MULTIPLE INHALATIONS, QD
     Route: 055
     Dates: start: 20010720
  29. BRONCHOSPASMIN [Suspect]
     Active Substance: REPROTEROL HYDROCHLORIDE
     Indication: CHRONIC OBSTRUCTIVE PULMONARY DISEASE
     Route: 042
     Dates: start: 20010720
  30. CIBACEN [Suspect]
     Active Substance: BENAZEPRIL HYDROCHLORIDE
     Dosage: 5 MG, QD
     Route: 048
     Dates: start: 20010726
  31. BISACODYL. [Suspect]
     Active Substance: BISACODYL
     Indication: CONSTIPATION
     Dosage: 1 DF, ONCE
     Route: 054
     Dates: start: 20010727, end: 20010727
  32. ALT-INSULIN [Suspect]
     Active Substance: FRUCTOSE\INSULIN BEEF
     Indication: DIABETES MELLITUS
     Dosage: 1 DF, QD
     Route: 058
     Dates: start: 20010720
  33. ACC [ACETYLCYSTEINE] [Suspect]
     Active Substance: ACETYLCYSTEINE
     Indication: SECRETION DISCHARGE
     Dosage: 600 MG, QD
     Route: 048
     Dates: start: 20010720
  34. HEPARIN [Suspect]
     Active Substance: HEPARIN SODIUM
     Indication: THROMBOSIS PROPHYLAXIS
     Dosage: 2500 IU, QD
     Route: 042
     Dates: start: 20010723
  35. BIFITERAL [Suspect]
     Active Substance: LACTULOSE
     Indication: CONSTIPATION
     Dosage: 20 ML, ONCE
     Route: 048
     Dates: start: 20010724
  36. POTASSIUM CHLORIDE. [Concomitant]
     Active Substance: POTASSIUM CHLORIDE
     Dosage: UNK, ONCE
     Route: 042
     Dates: start: 20010725, end: 20010725
  37. DIAZEPAM. [Suspect]
     Active Substance: DIAZEPAM
     Indication: AGITATION
     Dosage: 5 MG, ONCE
     Route: 042
     Dates: start: 20010720, end: 20010720
  38. LASIX [Suspect]
     Active Substance: FUROSEMIDE
     Indication: RENAL FAILURE
     Dosage: 1 DF, ONCE
     Route: 042
     Dates: start: 20010720, end: 20010720
  39. VOLMAC [Suspect]
     Active Substance: ALBUTEROL SULFATE
     Indication: CHRONIC OBSTRUCTIVE PULMONARY DISEASE
     Dosage: 8 MG, QD
     Route: 048
     Dates: start: 20010723
  40. MUCRET [Concomitant]
     Active Substance: ACETYLCYSTEINE
     Route: 048
     Dates: end: 20010720
  41. BAMBEC [Concomitant]
     Active Substance: BAMBUTEROL HYDROCHLORIDE
     Dosage: 1 DF, QD
     Dates: end: 20010720
  42. AMITRIPTYLINE [Suspect]
     Active Substance: AMITRIPTYLINE
     Indication: DEPRESSION
     Dosage: UNK
     Route: 048
  43. ACETYLSALICYLIC ACID (} 100 MG) [Suspect]
     Active Substance: ASPIRIN
     Indication: THROMBOSIS PROPHYLAXIS
     Dosage: 1 DF, QD
     Route: 048
     Dates: start: 20010725
  44. ISOPTIN [Concomitant]
     Active Substance: VERAPAMIL HYDROCHLORIDE
     Indication: TACHYCARDIA
     Dosage: AS USED DOSE: 240-0-0 MG, QAM
     Route: 048
     Dates: end: 20010720
  45. ISOPTIN [Concomitant]
     Active Substance: VERAPAMIL HYDROCHLORIDE
     Indication: TACHYCARDIA
     Dosage: AS USED DOSE: 120-120-120 MG
     Route: 048
     Dates: start: 20010725
  46. KALINOR [Concomitant]
     Active Substance: POTASSIUM CITRATE
     Route: 048
     Dates: start: 20010721
  47. CALCIUM CARBONATE. [Concomitant]
     Active Substance: CALCIUM CARBONATE
     Indication: CALCIUM DEFICIENCY
     Dosage: UNK
     Route: 048
     Dates: start: 20010720

REACTIONS (9)
  - Pyrexia [Fatal]
  - Rash [Fatal]
  - Blister [Fatal]
  - Mucosal erosion [Fatal]
  - Respiratory failure [None]
  - Septic shock [Fatal]
  - Toxic epidermal necrolysis [Fatal]
  - Nikolsky^s sign [Fatal]
  - Renal failure [Unknown]

NARRATIVE: CASE EVENT DATE: 20010731
